FAERS Safety Report 6367732-X (Version None)
Quarter: 2009Q3

REPORT INFORMATION
  Report Type: 
  Country: None (occurrence: None)
  Receive Date: 20090921
  Receipt Date: 20090910
  Transmission Date: 20100115
  Serious: Yes (Hospitalization, Other)
  Sender: FDA-Public Use
  Company Number: PHEH2009US10761

PATIENT

DRUGS (2)
  1. CLOZARIL [Suspect]
     Dosage: UNK
     Dates: end: 20090101
  2. INTERFERON [Interacting]
     Indication: HEPATITIS B

REACTIONS (5)
  - DRUG INTERACTION [None]
  - HEPATITIS B [None]
  - NEUTROPHIL COUNT DECREASED [None]
  - PSYCHOTIC DISORDER [None]
  - WHITE BLOOD CELL COUNT DECREASED [None]
